FAERS Safety Report 4592792-6 (Version None)
Quarter: 2005Q1

REPORT INFORMATION
  Report Type: 
  Country: None (occurrence: None)
  Receive Date: 20050228
  Receipt Date: 20050217
  Transmission Date: 20050727
  Serious: Yes (Hospitalization)
  Sender: FDA-Public Use
  Company Number: US-JNJFOC-20050204928

PATIENT
  Sex: Female
  Weight: 61.24 kg

DRUGS (2)
  1. TOPAMAX [Suspect]
     Indication: EPILEPSY
     Dosage: 100 MG IN AM/200MG IN PM
  2. ORAL CONTRACEPTIVE [Suspect]
     Dosage: DOSE UNSPECIFIED
     Route: 049
     Dates: start: 20011101, end: 20020201

REACTIONS (5)
  - CEREBROVASCULAR ACCIDENT [None]
  - CONVULSION [None]
  - MEMORY IMPAIRMENT [None]
  - MENORRHAGIA [None]
  - PSYCHOMOTOR SKILLS IMPAIRED [None]
